FAERS Safety Report 24209523 (Version 1)
Quarter: 2024Q3

REPORT INFORMATION
  Report Type: Spontaneous
  Country: US (occurrence: US)
  Receive Date: 20240814
  Receipt Date: 20240814
  Transmission Date: 20241016
  Serious: Yes (Hospitalization, Other)
  Sender: AMGEN
  Company Number: US-AMGEN-USASP2024157884

PATIENT
  Sex: Male

DRUGS (2)
  1. IMDELLTRA [Suspect]
     Active Substance: TARLATAMAB-DLLE
     Indication: Prostate cancer
     Dosage: UNK, FIRST DOSE
     Route: 065
     Dates: start: 202407, end: 202407
  2. IMDELLTRA [Suspect]
     Active Substance: TARLATAMAB-DLLE
     Dosage: UNK, SECOND DOSE
     Route: 065
     Dates: start: 20240804

REACTIONS (3)
  - Pain [Not Recovered/Not Resolved]
  - Metastases to central nervous system [Unknown]
  - Off label use [Unknown]

NARRATIVE: CASE EVENT DATE: 20240101
